FAERS Safety Report 18297923 (Version 21)
Quarter: 2022Q1

REPORT INFORMATION
  Report Type: Report from Study
  Country: DE (occurrence: DE)
  Receive Date: 20200922
  Receipt Date: 20220317
  Transmission Date: 20220423
  Serious: Yes (Life-Threatening, Hospitalization, Other)
  Sender: FDA-Public Use
  Company Number: DE-SA-2020SA105002

PATIENT
  Age: 86 Year
  Sex: Male
  Weight: 130 kg

DRUGS (7)
  1. BISOPROLOL [Suspect]
     Active Substance: BISOPROLOL
     Indication: Hypertension
     Dosage: UNK
     Route: 048
  2. BISOPROLOL [Suspect]
     Active Substance: BISOPROLOL
     Dosage: UNK
     Route: 048
     Dates: end: 20200507
  3. SPIRONOLACTONE [Suspect]
     Active Substance: SPIRONOLACTONE
     Indication: Hypertension
     Dosage: UNK
     Route: 048
     Dates: end: 20200507
  4. DUPILUMAB [Suspect]
     Active Substance: DUPILUMAB
     Indication: Dermatitis atopic
     Dosage: Q2W (QOW)
     Route: 058
     Dates: start: 20200227
  5. DUPILUMAB [Suspect]
     Active Substance: DUPILUMAB
     Indication: Asthma
  6. ADENOSINE [Suspect]
     Active Substance: ADENOSINE
     Indication: Product used for unknown indication
     Dosage: UNK
  7. VITAMIN B CO [Concomitant]
     Dosage: UNK

REACTIONS (27)
  - Fall [Recovered/Resolved]
  - Rib fracture [Not Recovered/Not Resolved]
  - Chest pain [Not Recovered/Not Resolved]
  - Abdominal pain [Not Recovered/Not Resolved]
  - Dyspnoea [Not Recovered/Not Resolved]
  - Bradyarrhythmia [Recovered/Resolved]
  - Hyperkalaemia [Recovered/Resolved]
  - Spinal stenosis [Not Recovered/Not Resolved]
  - Gait disturbance [Not Recovered/Not Resolved]
  - Urosepsis [Not Recovered/Not Resolved]
  - Atrioventricular block [Not Recovered/Not Resolved]
  - Inflammation [Not Recovered/Not Resolved]
  - Cardioversion [Recovered/Resolved]
  - General physical health deterioration [Not Recovered/Not Resolved]
  - Atrial fibrillation [Recovered/Resolved]
  - Dizziness [Recovered/Resolved]
  - Pleural effusion [Not Recovered/Not Resolved]
  - Cardiac disorder [Recovering/Resolving]
  - Hepatic cirrhosis [Recovering/Resolving]
  - Inflammatory marker increased [Not Recovered/Not Resolved]
  - Adverse event [Not Recovered/Not Resolved]
  - Cardiac failure [Not Recovered/Not Resolved]
  - General physical condition abnormal [Recovered/Resolved]
  - Urinary incontinence [Not Recovered/Not Resolved]
  - Head injury [Recovered/Resolved]
  - Pruritus [Not Recovered/Not Resolved]
  - Asthenia [Not Recovered/Not Resolved]

NARRATIVE: CASE EVENT DATE: 20200313
